FAERS Safety Report 18794903 (Version 2)
Quarter: 2021Q1

REPORT INFORMATION
  Report Type: Report from Study
  Country: CA (occurrence: CA)
  Receive Date: 20210127
  Receipt Date: 20210218
  Transmission Date: 20210419
  Serious: Yes (Other)
  Sender: FDA-Public Use
  Company Number: CA-JNJFOC-20201138835

PATIENT
  Age: 50 Year
  Sex: Male
  Weight: 68.1 kg

DRUGS (2)
  1. STELARA [Suspect]
     Active Substance: USTEKINUMAB
     Indication: CROHN^S DISEASE
     Route: 058
     Dates: start: 20200211
  2. STELARA [Suspect]
     Active Substance: USTEKINUMAB
     Dosage: ON 10?FEB?2021, THE PATIENT RECEIVED 8TH INJECTION AT 90 MG.
     Route: 058
     Dates: start: 20210118

REACTIONS (6)
  - Ulcer [Unknown]
  - Product use issue [Unknown]
  - Headache [Not Recovered/Not Resolved]
  - Off label use [Unknown]
  - Crohn^s disease [Unknown]
  - Myalgia [Unknown]

NARRATIVE: CASE EVENT DATE: 2020
